FAERS Safety Report 8989907 (Version 1)
Quarter: 2012Q4

REPORT INFORMATION
  Report Type: 
  Country: GB (occurrence: GB)
  Receive Date: 20121228
  Receipt Date: 20121228
  Transmission Date: 20130627
  Serious: Yes (Other)
  Sender: FDA-Public Use
  Company Number: GB-GLAXOSMITHKLINE-B0854103A

PATIENT
  Sex: Male

DRUGS (1)
  1. PAXIL [Suspect]
     Indication: ANXIETY DISORDER
     Route: 065
     Dates: start: 201005, end: 201109

REACTIONS (18)
  - Suicide attempt [Unknown]
  - Suicidal ideation [Unknown]
  - Syncope [Unknown]
  - Abnormal behaviour [Unknown]
  - Alcoholism [Unknown]
  - Pain [Unknown]
  - Pyrexia [Unknown]
  - Amnesia [Unknown]
  - Withdrawal syndrome [Unknown]
  - Fall [Unknown]
  - Chest discomfort [Unknown]
  - Anaemia [Unknown]
  - Arthralgia [Unknown]
  - Weight increased [Unknown]
  - Muscle spasms [Unknown]
  - Depressed mood [Unknown]
  - Feeling abnormal [Unknown]
  - Malaise [Unknown]
